FAERS Safety Report 23180913 (Version 1)
Quarter: 2023Q4

REPORT INFORMATION
  Report Type: Spontaneous
  Country: DE (occurrence: DE)
  Receive Date: 20231114
  Receipt Date: 20231114
  Transmission Date: 20240110
  Serious: Yes (Other)
  Sender: FDA-Public Use
  Company Number: None

PATIENT
  Age: 1 Day
  Sex: Female
  Weight: 2 kg

DRUGS (1)
  1. ESCITALOPRAM [Suspect]
     Active Substance: ESCITALOPRAM OXALATE
     Indication: Product used for unknown indication
     Dosage: MOTHER^S DOSE: 20 [MG/D ]/ DOSAGE 20 MG/D, DISCONTINUED AT GW 5.6.
     Route: 064

REACTIONS (3)
  - Small for dates baby [Recovered/Resolved]
  - Foetal exposure during pregnancy [Unknown]
  - Microcephaly [Recovered/Resolved]

NARRATIVE: CASE EVENT DATE: 20230101
